FAERS Safety Report 5925721-0 (Version None)
Quarter: 2008Q4

REPORT INFORMATION
  Report Type: 
  Country: None (occurrence: None)
  Receive Date: 20081021
  Receipt Date: 20081013
  Transmission Date: 20090506
  Serious: Yes (Other)
  Sender: FDA-Public Use
  Company Number: PHHO2008GB09724

PATIENT
  Sex: Female

DRUGS (8)
  1. TASIGNA [Suspect]
     Indication: CHRONIC MYELOID LEUKAEMIA
     Dosage: 400 MG, BID
     Route: 048
     Dates: start: 20070711, end: 20080730
  2. TASIGNA [Suspect]
     Dosage: UNK
     Dates: start: 20080731, end: 20080807
  3. TASIGNA [Suspect]
     Dosage: 300 MG, BID
     Dates: start: 20080808
  4. ACETAMINOPHEN [Concomitant]
     Indication: BACK PAIN
  5. MOVICOL [Concomitant]
     Indication: CONSTIPATION
  6. RANITIDINE [Concomitant]
     Indication: DYSPEPSIA
  7. KETOPROFEN [Concomitant]
     Indication: MUSCLE SPASMS
  8. CIPROFLOXACIN [Concomitant]
     Indication: PROPHYLAXIS

REACTIONS (5)
  - CHEST DISCOMFORT [None]
  - DYSPNOEA [None]
  - HEART RATE IRREGULAR [None]
  - SUPRAVENTRICULAR EXTRASYSTOLES [None]
  - SUPRAVENTRICULAR TACHYCARDIA [None]
